FAERS Safety Report 18487320 (Version 5)
Quarter: 2022Q2

REPORT INFORMATION
  Report Type: Spontaneous
  Country: US (occurrence: US)
  Receive Date: 20201110
  Receipt Date: 20220502
  Transmission Date: 20220720
  Serious: No
  Sender: FDA-Public Use
  Company Number: US-PFIZER INC-2019287776

PATIENT
  Age: 71 Year
  Sex: Female
  Weight: 67.13 kg

DRUGS (5)
  1. LYRICA [Suspect]
     Active Substance: PREGABALIN
     Dosage: 300 MG, 1X/DAY (EVERY PM/ AT NIGHT)
     Route: 048
     Dates: start: 20190621
  2. LYRICA [Suspect]
     Active Substance: PREGABALIN
     Dosage: 150 MG, 3X/DAY
     Route: 048
     Dates: start: 20200626
  3. LYRICA [Suspect]
     Active Substance: PREGABALIN
     Dosage: 600 MG, DAILY (150MG; ONE CAPSULE IN THE MORNING, ONE IN THE AFTER NOON AND TWO CAPSULES AT BEDTIME)
  4. LYRICA [Suspect]
     Active Substance: PREGABALIN
     Dosage: 300 MG, 1X/DAY (EVERY PM/TAKE 1 CAPSULE AT NIGHT)
     Route: 048
     Dates: start: 20201106
  5. LYRICA [Suspect]
     Active Substance: PREGABALIN
     Dosage: 150 MG, 3X/DAY (TAKE 1 CAP IN THE MORNING, 1 CAP AT NOON AND AT BEDTIME)
     Route: 048
     Dates: start: 20201106

REACTIONS (3)
  - Hypoacusis [Unknown]
  - Confusional state [Unknown]
  - Frustration tolerance decreased [Unknown]
